FAERS Safety Report 15267483 (Version 2)
Quarter: 2018Q3

REPORT INFORMATION
  Report Type: Spontaneous
  Country: US (occurrence: US)
  Receive Date: 20180811
  Receipt Date: 20180926
  Transmission Date: 20181010
  Serious: No
  Sender: FDA-Public Use
  Company Number: US-HORIZON-KRY-0124-2018

PATIENT
  Age: 37 Year
  Sex: Male

DRUGS (1)
  1. KRYSTEXXA [Suspect]
     Active Substance: PEGLOTICASE
     Indication: GOUT
     Dosage: 8 MG Q 2 WEEKS
     Dates: start: 20180709, end: 20180806

REACTIONS (5)
  - Hypersensitivity [Unknown]
  - Arthralgia [Unknown]
  - Swelling [Unknown]
  - Drug specific antibody present [Unknown]
  - Therapeutic response decreased [Unknown]

NARRATIVE: CASE EVENT DATE: 20180803
